FAERS Safety Report 5023326-X (Version None)
Quarter: 2006Q2

REPORT INFORMATION
  Report Type: 
  Country: None (occurrence: None)
  Receive Date: 20060606
  Receipt Date: 20060522
  Transmission Date: 20061013
  Serious: Yes (Hospitalization)
  Sender: FDA-Public Use
  Company Number: 2006BH010439

PATIENT
  Age: 72 Year
  Sex: Male

DRUGS (14)
  1. 0.9% SODIUIM CHLORIDE INJECTION IN PLASTIC CONTAINER (SODIUM CHLORIDE) [Suspect]
     Indication: CHRONIC OBSTRUCTIVE PULMONARY DISEASE
     Dosage: 250 ML; ONCE; IV
     Route: 042
     Dates: start: 20060424, end: 20060424
  2. 0.9% SODIUIM CHLORIDE INJECTION IN PLASTIC CONTAINER (SODIUM CHLORIDE) [Suspect]
     Indication: CONDITION AGGRAVATED
     Dosage: 250 ML; ONCE; IV
     Route: 042
     Dates: start: 20060424, end: 20060424
  3. SOLU-MEDROL [Suspect]
     Indication: CHRONIC OBSTRUCTIVE PULMONARY DISEASE
     Dosage: 40 MG; ONCE; IV
     Route: 042
     Dates: start: 20060424, end: 20060424
  4. SOLU-MEDROL [Suspect]
     Indication: CONDITION AGGRAVATED
     Dosage: 40 MG; ONCE; IV
     Route: 042
     Dates: start: 20060424, end: 20060424
  5. SYNTOPHYLLIN (AMINOPHYLLINE) [Suspect]
     Indication: CHRONIC OBSTRUCTIVE PULMONARY DISEASE
     Dosage: 1 VIAL; ONCE; IV
     Route: 042
     Dates: start: 20060424, end: 20060424
  6. SYNTOPHYLLIN (AMINOPHYLLINE) [Suspect]
     Indication: CONDITION AGGRAVATED
     Dosage: 1 VIAL; ONCE; IV
     Route: 042
     Dates: start: 20060424, end: 20060424
  7. UNASYN [Concomitant]
  8. PULMICORT [Concomitant]
  9. OXIS [Concomitant]
  10. ATROVENT [Concomitant]
  11. DIGOXIN [Concomitant]
  12. BERODUAL [Concomitant]
  13. FURON [Concomitant]
  14. AMBROBENE [Concomitant]

REACTIONS (5)
  - BODY TEMPERATURE INCREASED [None]
  - CHILLS [None]
  - TACHYCARDIA [None]
  - TREMOR [None]
  - WHEEZING [None]
